FAERS Safety Report 8256817-9 (Version None)
Quarter: 2012Q2

REPORT INFORMATION
  Report Type: 
  Country: None (occurrence: None)
  Receive Date: 20120403
  Receipt Date: 20120330
  Transmission Date: 20120825
  Serious: Yes (Hospitalization, Other)
  Sender: FDA-Public Use
  Company Number: PHHO2012IT005056

PATIENT
  Sex: Female
  Weight: 68 kg

DRUGS (3)
  1. DEXACORTIN [Suspect]
     Dosage: 5 MG, QD
     Route: 048
     Dates: start: 20120113
  2. MYFORTIC [Suspect]
     Indication: RENAL TRANSPLANT
     Dosage: 720 MG, BID
     Route: 048
     Dates: start: 20120113, end: 20120326
  3. CERTICAN [Suspect]
     Indication: RENAL TRANSPLANT
     Dosage: 4 MG, BID
     Route: 048
     Dates: start: 20120120

REACTIONS (3)
  - ANAEMIA [None]
  - PNEUMONIA [None]
  - NEUTROPENIA [None]
